FAERS Safety Report 6161514-X (Version None)
Quarter: 2009Q2

REPORT INFORMATION
  Report Type: 
  Country: None (occurrence: None)
  Receive Date: 20090421
  Receipt Date: 20090415
  Transmission Date: 20091009
  Serious: Yes (Death, Hospitalization, Other)
  Sender: FDA-Public Use
  Company Number: US-BAYER-200918464GPV

PATIENT
  Age: 41 Year
  Sex: Female

DRUGS (13)
  1. ALEMTUZUMAB [Suspect]
     Indication: TRANSPLANT REJECTION
     Dosage: SINGLE DOSE
     Dates: start: 20060501, end: 20060501
  2. RABBIT ANTI-THYMOGCYTE GLOBULIN [Suspect]
     Indication: TRANSPLANT REJECTION
     Dosage: TWO TIMES OF 1,5 MG/KG DAS FOR 3 DAYS
  3. METHYLPREDNISOLONE 4MG TAB [Concomitant]
     Indication: LUNG TRANSPLANT
     Dosage: 4 TIMES OF INTRAVENOUS PULSES FOR 3 DAYS
     Route: 042
  4. METHYLPREDNISOLONE 4MG TAB [Concomitant]
     Dates: start: 20031201, end: 20031201
  5. PREDNISONE [Concomitant]
     Indication: LUNG TRANSPLANT
  6. PREDNISONE [Concomitant]
     Dates: start: 20060501
  7. TACROLIMUS [Concomitant]
     Indication: LUNG TRANSPLANT
     Dates: end: 20070101
  8. TACROLIMUS [Concomitant]
     Dosage: MAINTAINED AT A THERAPEUTIC LEVEL
     Dates: start: 20070101
  9. TRIMETHOPRIM + SULFAMETHOXAZOLE [Concomitant]
     Indication: PROPHYLAXIS
  10. GANCICLOVIR [Concomitant]
     Indication: ANTIVIRAL PROPHYLAXIS
     Route: 042
  11. GANCICLOVIR [Concomitant]
  12. VORICONAZOLE [Concomitant]
     Indication: PROPHYLAXIS
     Dates: start: 20060101, end: 20070101
  13. AMPHOTERICIN B [Concomitant]
     Indication: PROPHYLAXIS
     Route: 055

REACTIONS (5)
  - JC VIRUS INFECTION [None]
  - PNEUMONITIS [None]
  - PROGRESSIVE MULTIFOCAL LEUKOENCEPHALOPATHY [None]
  - RESPIRATORY FAILURE [None]
  - SEPSIS [None]
